FAERS Safety Report 24429438 (Version 2)
Quarter: 2024Q4

REPORT INFORMATION
  Report Type: Spontaneous
  Country: JP (occurrence: JP)
  Receive Date: 20241011
  Receipt Date: 20241101
  Transmission Date: 20250114
  Serious: Yes (Hospitalization)
  Sender: KOWA PHARMACEUTICALS AMERICA, INC.
  Company Number: JP-KOWA-24JP002492

PATIENT
  Age: 61 Year
  Sex: Male

DRUGS (1)
  1. LIVALO [Suspect]
     Active Substance: PITAVASTATIN CALCIUM
     Indication: Dyslipidaemia
     Dosage: UNK, UNK
     Route: 048

REACTIONS (1)
  - Agranulocytosis [Unknown]
